FAERS Safety Report 7434468-3 (Version None)
Quarter: 2011Q2

REPORT INFORMATION
  Report Type: 
  Country: None (occurrence: None)
  Receive Date: 20110415
  Receipt Date: 20110331
  Transmission Date: 20111010
  Serious: Yes (Hospitalization)
  Sender: FDA-Public Use
  Company Number: 030289

PATIENT
  Sex: Female

DRUGS (9)
  1. NEUPRO [Suspect]
     Indication: PARKINSON'S DISEASE
     Dosage: 2MG, 8  MG 1X24 HOURS TRANSDERMAL
     Route: 062
     Dates: start: 20100701, end: 20100728
  2. NEUPRO [Suspect]
     Indication: PARKINSON'S DISEASE
     Dosage: 2MG, 8  MG 1X24 HOURS TRANSDERMAL
     Route: 062
     Dates: start: 20100729
  3. ENTACAPONE [Concomitant]
  4. MAGNESIUM OXIDE [Concomitant]
  5. MITIGLINIDE [Concomitant]
  6. FLUVASTATIN SODIUM [Concomitant]
  7. CARBIDOPA + LEVODOPA [Concomitant]
  8. DIPHENHYDRAMINE [Concomitant]
  9. FELBINAC [Concomitant]

REACTIONS (4)
  - PALPITATIONS [None]
  - SUPRAVENTRICULAR TACHYCARDIA [None]
  - CARDIAC HYPERTROPHY [None]
  - CHEST PAIN [None]
